FAERS Safety Report 8860218 (Version 3)
Quarter: 2013Q1

REPORT INFORMATION
  Report Type: Report from Study
  Country: AU (occurrence: AU)
  Receive Date: 20121025
  Receipt Date: 20130110
  Transmission Date: 20140127
  Serious: Yes (Hospitalization, Other)
  Sender: FDA-Public Use
  Company Number: PHHY2012AU094042

PATIENT
  Age: 46 Year
  Sex: Male

DRUGS (9)
  1. CLOZARIL [Suspect]
     Indication: SCHIZOPHRENIA
     Dosage: 350 MG, UNK
     Route: 048
     Dates: start: 20040317, end: 20121019
  2. VENLAFAXIN [Concomitant]
     Indication: DEPRESSION
     Dosage: 300 MG, QD
     Route: 048
  3. GLICLAZIDE [Concomitant]
     Indication: DIABETES MELLITUS
     Dosage: 30 MG, UNK
     Route: 048
  4. METFORMIN [Concomitant]
     Indication: DIABETES MELLITUS
     Dosage: 1.5 G, UNK
     Route: 048
  5. LANTUS [Concomitant]
     Indication: DIABETES MELLITUS
     Dosage: 10 U, UNK
     Route: 058
  6. OMEPRAZOLE [Concomitant]
     Dosage: 20 MG NOCTE
  7. TEMAZEPAM [Concomitant]
     Dosage: 100 MG NOCTE
  8. BENZOPIN [Concomitant]
     Dosage: 20 MG NOCTE
  9. PERINDOPRIL [Concomitant]
     Indication: DIABETES MELLITUS
     Dosage: 2.5 MG, UNK
     Route: 048

REACTIONS (7)
  - Blood disorder [Unknown]
  - Neutropenia [Recovered/Resolved]
  - Leukopenia [Recovered/Resolved]
  - Hepatitis C [Unknown]
  - Hypersplenism [Unknown]
  - Thrombocytopenia [Unknown]
  - Haemoglobin decreased [Unknown]
